FAERS Safety Report 15290928 (Version 1)
Quarter: 2018Q3

REPORT INFORMATION
  Report Type: Report from Study
  Country: None (occurrence: TN)
  Receive Date: 20180817
  Receipt Date: 20180817
  Transmission Date: 20181010
  Serious: Yes (Other)
  Sender: FDA-Public Use
  Company Number: TN-BAUSCH-BL-2018-022303

PATIENT
  Age: 35 Year
  Sex: Female

DRUGS (4)
  1. INTERFERON ALFA NOS [Suspect]
     Active Substance: INTERFERON ALFA-2A OR INTERFERON ALFA-2B
     Indication: ANGIOLYMPHOID HYPERPLASIA WITH EOSINOPHILIA
     Route: 065
  2. PREDNISONE. [Suspect]
     Active Substance: PREDNISONE
     Indication: ANGIOLYMPHOID HYPERPLASIA WITH EOSINOPHILIA
     Route: 048
  3. TRIAMCINOLONE ACETONIDE. [Suspect]
     Active Substance: TRIAMCINOLONE ACETONIDE
     Indication: ANGIOLYMPHOID HYPERPLASIA WITH EOSINOPHILIA
     Dosage: LOCAL INFILTRATION
     Route: 050
  4. PENTOXIFYLLINE. [Suspect]
     Active Substance: PENTOXIFYLLINE
     Indication: ANGIOLYMPHOID HYPERPLASIA WITH EOSINOPHILIA
     Route: 065

REACTIONS (1)
  - Drug ineffective [Unknown]
